FAERS Safety Report 4439222-2 (Version None)
Quarter: 2004Q3

REPORT INFORMATION
  Report Type: 
  Country: None (occurrence: None)
  Receive Date: 20040728
  Receipt Date: 20040503
  Transmission Date: 20050211
  Serious: No
  Sender: FDA-Public Use
  Company Number: USA040362013

PATIENT
  Age: 14 Year
  Sex: Male
  Weight: 61 kg

DRUGS (1)
  1. STRATTERA [Suspect]
     Indication: ATTENTION DEFICIT/HYPERACTIVITY DISORDER
     Dosage: 60 MG/L DAY
     Dates: start: 20040117

REACTIONS (2)
  - FAECALOMA [None]
  - URINARY TRACT INFECTION [None]
